FAERS Safety Report 7396409-7 (Version None)
Quarter: 2011Q2

REPORT INFORMATION
  Report Type: 
  Country: None (occurrence: None)
  Receive Date: 20110406
  Receipt Date: 20110404
  Transmission Date: 20111010
  Serious: Yes (Other)
  Sender: FDA-Public Use
  Company Number: US-CEPHALON-US019131

PATIENT
  Sex: Female
  Weight: 68 kg

DRUGS (9)
  1. FENTORA [Suspect]
     Indication: NECK PAIN
     Dosage: UP TO FOUR TABLETS QD PRN
     Route: 002
     Dates: start: 20061215
  2. FENTANYL CITRATE [Concomitant]
     Indication: NECK PAIN
     Dosage: UP TO FOUR LOZENGES QHS
     Route: 002
     Dates: start: 20061101
  3. FENTANYL CITRATE [Concomitant]
     Indication: FIBROMYALGIA
  4. MS CONTIN [Concomitant]
     Indication: NECK PAIN
     Dosage: 60MG QAM; 30MG QHS
     Route: 065
  5. MS CONTIN [Concomitant]
     Indication: BACK PAIN
  6. FENTORA [Suspect]
     Indication: BACK PAIN
  7. FENTORA [Suspect]
     Indication: FIBROMYALGIA
  8. FENTANYL CITRATE [Concomitant]
     Indication: BACK PAIN
  9. MS CONTIN [Concomitant]
     Indication: FIBROMYALGIA

REACTIONS (39)
  - DRUG PRESCRIBING ERROR [None]
  - TREMOR [None]
  - WEIGHT INCREASED [None]
  - CHILLS [None]
  - CONSTIPATION [None]
  - DRY MOUTH [None]
  - APPLICATION SITE IRRITATION [None]
  - PRURITUS [None]
  - NAUSEA [None]
  - VOMITING [None]
  - FALL [None]
  - MOTOR DYSFUNCTION [None]
  - IRRITABILITY [None]
  - DIARRHOEA [None]
  - ABDOMINAL PAIN [None]
  - APPLICATION SITE VESICLES [None]
  - GINGIVAL PAIN [None]
  - HEADACHE [None]
  - DEPRESSION [None]
  - OEDEMA [None]
  - CONFUSIONAL STATE [None]
  - FORMICATION [None]
  - FATIGUE [None]
  - RASH [None]
  - MENTAL IMPAIRMENT [None]
  - GINGIVAL RECESSION [None]
  - COLD SWEAT [None]
  - INSOMNIA [None]
  - GASTROOESOPHAGEAL REFLUX DISEASE [None]
  - MUSCLE SPASMS [None]
  - BACK PAIN [None]
  - WITHDRAWAL SYNDROME [None]
  - RHINORRHOEA [None]
  - HOT FLUSH [None]
  - NEOPLASM SKIN [None]
  - SOMNOLENCE [None]
  - ANXIETY [None]
  - ARTHRALGIA [None]
  - DIZZINESS [None]
